FAERS Safety Report 16042937 (Version 1)
Quarter: 2019Q2

REPORT INFORMATION
  Report Type: Spontaneous
  Country: US (occurrence: US)
  Receive Date: 20190306
  Receipt Date: 20190306
  Transmission Date: 20190711
  Serious: Yes (Other)
  Sender: FDA-Public Use
  Company Number: None

PATIENT
  Age: 34 Year
  Sex: Female
  Weight: 75.6 kg

DRUGS (4)
  1. RITALIN [Concomitant]
     Active Substance: METHYLPHENIDATE HYDROCHLORIDE
  2. SPRINTEC [Concomitant]
     Active Substance: ETHINYL ESTRADIOL\NORGESTIMATE
  3. NASONEX [Concomitant]
     Active Substance: MOMETASONE FUROATE
  4. LEVAQUIN [Suspect]
     Active Substance: LEVOFLOXACIN
     Indication: SINUSITIS

REACTIONS (8)
  - Muscular weakness [None]
  - Gait disturbance [None]
  - Neuropathy peripheral [None]
  - Tendon disorder [None]
  - Musculoskeletal stiffness [None]
  - Joint swelling [None]
  - Tendon pain [None]
  - Neuralgia [None]

NARRATIVE: CASE EVENT DATE: 20180327
